FAERS Safety Report 7737105-3 (Version None)
Quarter: 2011Q3

REPORT INFORMATION
  Report Type: 
  Country: None (occurrence: None)
  Receive Date: 20110908
  Receipt Date: 20110831
  Transmission Date: 20111222
  Serious: Yes (Other)
  Sender: FDA-Public Use
  Company Number: US-JNJFOC-20110802378

PATIENT
  Age: 30 Year
  Sex: Male

DRUGS (1)
  1. NUCYNTA [Suspect]
     Indication: BACK PAIN
     Dosage: EVERY 12 HOUR
     Route: 048
     Dates: start: 20110629, end: 20110704

REACTIONS (1)
  - APNOEA [None]
